FAERS Safety Report 6996700-X (Version None)
Quarter: 2010Q3

REPORT INFORMATION
  Report Type: 
  Country: None (occurrence: None)
  Receive Date: 20100918
  Receipt Date: 20090617
  Transmission Date: 20110219
  Serious: No
  Sender: FDA-Public Use
  Company Number: US-WYE-H09797109

PATIENT
  Age: 35 Year
  Sex: Female

DRUGS (1)
  1. NORPLANT SYSTEM [Suspect]
     Indication: CONTRACEPTION
     Dosage: 6 CAPSULES
     Route: 023

REACTIONS (3)
  - DEVICE DISLOCATION [None]
  - INCORRECT DRUG ADMINISTRATION DURATION [None]
  - WEIGHT INCREASED [None]
